FAERS Safety Report 6180313-6 (Version None)
Quarter: 2009Q2

REPORT INFORMATION
  Report Type: 
  Country: None (occurrence: None)
  Receive Date: 20090504
  Receipt Date: 20090504
  Transmission Date: 20091009
  Serious: Yes (Death, Hospitalization)
  Sender: FDA-Public Use
  Company Number: None

PATIENT
  Sex: Male

DRUGS (9)
  1. REVLIMID [Suspect]
     Indication: MULTIPLE MYELOMA
     Dosage: 25 MG DAILY X 21D ORAL
     Route: 048
     Dates: start: 20080424, end: 20081023
  2. DEXAMETHASONE 4MG TAB [Concomitant]
  3. OMEPRAZOLE [Concomitant]
  4. INSULIN [Concomitant]
  5. PROCRIT [Concomitant]
  6. METFORMIN HCL [Concomitant]
  7. LISINOPRIL [Concomitant]
  8. LOVASTATIN [Concomitant]
  9. ASPIRIN [Concomitant]

REACTIONS (10)
  - AMMONIA INCREASED [None]
  - ASTHENIA [None]
  - BRAIN STEM HAEMORRHAGE [None]
  - LETHARGY [None]
  - MALIGNANT NEOPLASM PROGRESSION [None]
  - METABOLIC ENCEPHALOPATHY [None]
  - MULTIPLE MYELOMA [None]
  - ONCOLOGIC COMPLICATION [None]
  - PANCYTOPENIA [None]
  - PNEUMONIA [None]
